FAERS Safety Report 11423902 (Version 1)
Quarter: 2015Q3

REPORT INFORMATION
  Report Type: Spontaneous
  Country: US (occurrence: US)
  Receive Date: 20150827
  Receipt Date: 20150827
  Transmission Date: 20151125
  Serious: No
  Sender: FDA-Public Use
  Company Number: US-JNJFOC-20150319083

PATIENT
  Sex: Male

DRUGS (4)
  1. MOTRIN IB [Suspect]
     Active Substance: IBUPROFEN
     Indication: SWELLING
     Dosage: TAKE 3 ORALLY EVERY AHOURS AS NEEDED.
     Route: 048
  2. MOTRIN IB [Suspect]
     Active Substance: IBUPROFEN
     Indication: PAIN
     Dosage: TAKE 3 ORALLY EVERY AHOURS AS NEEDED.
     Route: 048
  3. MOTRIN IB [Suspect]
     Active Substance: IBUPROFEN
     Indication: PYREXIA
     Dosage: TAKE 3 ORALLY EVERY AHOURS AS NEEDED.
     Route: 048
  4. MOTRIN IB [Suspect]
     Active Substance: IBUPROFEN
     Indication: MUSCULOSKELETAL STIFFNESS
     Dosage: TAKE 3 ORALLY EVERY AHOURS AS NEEDED.
     Route: 048

REACTIONS (2)
  - Product use issue [Unknown]
  - Inappropriate schedule of drug administration [Unknown]
